FAERS Safety Report 4912784-4 (Version None)
Quarter: 2006Q1

REPORT INFORMATION
  Report Type: 
  Country: None (occurrence: None)
  Receive Date: 20060215
  Receipt Date: 20041025
  Transmission Date: 20060701
  Serious: Yes (Disabling)
  Sender: FDA-Public Use
  Company Number: US-ROCHE-384467

PATIENT
  Age: 23 Year
  Sex: Female
  Weight: 59 kg

DRUGS (3)
  1. ACCUTANE [Suspect]
     Indication: ACNE
     Route: 065
     Dates: start: 19871221, end: 19880615
  2. ACCUTANE [Suspect]
     Route: 065
     Dates: start: 19900925
  3. ORAL CONTRACEPTIVE PILL [Concomitant]
     Route: 048

REACTIONS (37)
  - ABORTION MISSED [None]
  - ABORTION SPONTANEOUS [None]
  - ACNE [None]
  - ALOPECIA [None]
  - ANXIETY [None]
  - ARTHROPATHY [None]
  - BLOOD GLUCOSE INCREASED [None]
  - BLOOD TESTOSTERONE INCREASED [None]
  - BREAST MASS [None]
  - BURSITIS [None]
  - CERVICAL DYSPLASIA [None]
  - CERVICITIS [None]
  - COLITIS [None]
  - COLITIS ULCERATIVE [None]
  - COLON INJURY [None]
  - CROHN'S DISEASE [None]
  - DRUG EXPOSURE BEFORE PREGNANCY [None]
  - EAR PAIN [None]
  - EMOTIONAL DISTRESS [None]
  - GASTROINTESTINAL DISORDER [None]
  - HAIR GROWTH ABNORMAL [None]
  - HAIR TEXTURE ABNORMAL [None]
  - HYPERHIDROSIS [None]
  - INFLAMMATORY BOWEL DISEASE [None]
  - INTESTINAL HAEMORRHAGE [None]
  - MULTI-ORGAN DISORDER [None]
  - MULTIPLE ALLERGIES [None]
  - MUSCLE INJURY [None]
  - PAPILLOMA VIRAL INFECTION [None]
  - PULMONARY CONGESTION [None]
  - RASH [None]
  - RECTAL HAEMORRHAGE [None]
  - SINUSITIS [None]
  - STRESS [None]
  - TRICHORRHEXIS [None]
  - UTERINE CERVICAL SQUAMOUS METAPLASIA [None]
  - WHITE BLOOD CELL COUNT INCREASED [None]
